FAERS Safety Report 24580862 (Version 1)
Quarter: 2024Q4

REPORT INFORMATION
  Report Type: Spontaneous
  Country: US (occurrence: None)
  Receive Date: 20241105
  Receipt Date: 20241105
  Transmission Date: 20250114
  Serious: Yes (Hospitalization)
  Sender: Public
  Company Number: None

PATIENT
  Age: 55 Year
  Sex: Female

DRUGS (1)
  1. AMBRISENTAN [Suspect]
     Active Substance: AMBRISENTAN
     Indication: Pulmonary hypertension
     Dosage: FREQ: TAKE 1 TABLET BY MOUTH DAILY.?
     Route: 048
     Dates: start: 20231218

REACTIONS (4)
  - Therapy interrupted [None]
  - Hypotension [None]
  - Dehydration [None]
  - Haemoglobin decreased [None]

NARRATIVE: CASE EVENT DATE: 20241102
